FAERS Safety Report 25890079 (Version 2)
Quarter: 2025Q4

REPORT INFORMATION
  Report Type: Spontaneous
  Country: CA (occurrence: CA)
  Receive Date: 20251007
  Receipt Date: 20251014
  Transmission Date: 20260118
  Serious: Yes (Other)
  Sender: RANBAXY
  Company Number: CA-SUN PHARMACEUTICAL INDUSTRIES INC-2025R1-530129

PATIENT
  Age: 77 Year
  Sex: Female
  Weight: 51.7 kg

DRUGS (1)
  1. HYDROXYCHLOROQUINE [Suspect]
     Active Substance: HYDROXYCHLOROQUINE
     Indication: Rheumatoid arthritis
     Dosage: 200 MILLIGRAM, DAILY FOR 5 YEARS, CUMULATIVE DOSE: 365 GRAMS
     Route: 065

REACTIONS (3)
  - Toxicity to various agents [Unknown]
  - Retinal toxicity [Recovering/Resolving]
  - Maculopathy [Recovering/Resolving]
